FAERS Safety Report 25815083 (Version 1)
Quarter: 2025Q3

REPORT INFORMATION
  Report Type: Spontaneous
  Country: US (occurrence: US)
  Receive Date: 20250918
  Receipt Date: 20250918
  Transmission Date: 20251021
  Serious: No
  Sender: ALVOGEN
  Company Number: US-ALVOGEN-2024095592

PATIENT

DRUGS (1)
  1. GABAPENTIN [Suspect]
     Active Substance: GABAPENTIN
     Indication: Pain

REACTIONS (3)
  - Peripheral swelling [Unknown]
  - Weight increased [Unknown]
  - Product use in unapproved indication [Unknown]
